FAERS Safety Report 6212869-9 (Version None)
Quarter: 2009Q2

REPORT INFORMATION
  Report Type: 
  Country: None (occurrence: None)
  Receive Date: 20090603
  Receipt Date: 20090526
  Transmission Date: 20091009
  Serious: Yes (Hospitalization, Disabling)
  Sender: FDA-Public Use
  Company Number: PHHO2008FR12641

PATIENT
  Sex: Male
  Weight: 93 kg

DRUGS (2)
  1. RAD 666 RAD++CMAS [Suspect]
     Indication: NON-SMALL CELL LUNG CANCER
     Dosage: 5 MG/DAY
     Route: 048
     Dates: start: 20080903
  2. TARCEVA [Concomitant]
     Indication: NON-SMALL CELL LUNG CANCER
     Dosage: 150 MG/DAY
     Route: 048
     Dates: start: 20080903

REACTIONS (7)
  - ALANINE AMINOTRANSFERASE INCREASED [None]
  - ANOREXIA [None]
  - ASPARTATE AMINOTRANSFERASE INCREASED [None]
  - ASTHENIA [None]
  - CYTOLYTIC HEPATITIS [None]
  - GAMMA-GLUTAMYLTRANSFERASE INCREASED [None]
  - STOMATITIS [None]
